FAERS Safety Report 7874788-1 (Version None)
Quarter: 2011Q4

REPORT INFORMATION
  Report Type: 
  Country: None (occurrence: None)
  Receive Date: 20111031
  Receipt Date: 20111021
  Transmission Date: 20120403
  Serious: Yes (Other)
  Sender: FDA-Public Use
  Company Number: US-US-EMD SERONO, INC.-7091431

PATIENT
  Sex: Female

DRUGS (2)
  1. NAPROXEN [Concomitant]
  2. REBIF [Suspect]
     Indication: PRODUCT USED FOR UNKNOWN INDICATION
     Route: 058
     Dates: start: 20110706

REACTIONS (6)
  - WHITE BLOOD CELL COUNT INCREASED [None]
  - MENISCUS LESION [None]
  - VIRAL INFECTION [None]
  - OEDEMA PERIPHERAL [None]
  - NASOPHARYNGITIS [None]
  - LOCALISED INFECTION [None]
